FAERS Safety Report 8024674-1 (Version None)
Quarter: 2012Q1

REPORT INFORMATION
  Report Type: 
  Country: None (occurrence: None)
  Receive Date: 20120105
  Receipt Date: 20111221
  Transmission Date: 20120608
  Serious: Yes (Hospitalization)
  Sender: FDA-Public Use
  Company Number: DE-UCBSA-047891

PATIENT
  Age: 63 Year

DRUGS (10)
  1. VALPROATE SODIUM [Suspect]
     Dosage: 1500
     Dates: start: 20100716, end: 20100722
  2. VALPROATE SODIUM [Suspect]
     Dosage: 1250
     Dates: start: 20100723, end: 20100729
  3. KEPPRA [Suspect]
     Indication: EPILEPSY
     Dosage: 2500
  4. VALPROATE SODIUM [Suspect]
     Indication: EPILEPSY
     Dosage: 1750
     Dates: start: 20100714, end: 20100715
  5. VALPROATE SODIUM [Suspect]
     Dosage: 1000
     Dates: start: 20100730, end: 20100805
  6. VALPROATE SODIUM [Suspect]
     Dosage: 750
     Dates: start: 20100806, end: 20100812
  7. VALPROATE SODIUM [Suspect]
     Dosage: 500
     Dates: start: 20100813, end: 20100819
  8. VALPROATE SODIUM [Suspect]
     Dosage: 250
     Dates: start: 20100820
  9. VALPROATE SODIUM [Concomitant]
  10. VIMPAT [Suspect]
     Dosage: 400

REACTIONS (5)
  - STATUS EPILEPTICUS [None]
  - COMA [None]
  - AURA [None]
  - GRAND MAL CONVULSION [None]
  - CONVULSION [None]
